FAERS Safety Report 9289166 (Version 3)
Quarter: 2013Q3

REPORT INFORMATION
  Report Type: Spontaneous
  Country: US (occurrence: US)
  Receive Date: 20130514
  Receipt Date: 20130704
  Transmission Date: 20140515
  Serious: Yes (Other)
  Sender: FDA-Public Use
  Company Number: CHPA2013US008111

PATIENT
  Age: 37 Year
  Sex: Female

DRUGS (3)
  1. GAS-X EXTRA STRENGTH SOFTGELS [Suspect]
     Indication: FLATULENCE
     Dosage: 250 MG, UNK
     Route: 048
  2. GAS-X EXTRA STRENGTH SOFTGELS [Suspect]
     Indication: ABDOMINAL DISTENSION
  3. COLACE [Concomitant]
     Indication: CONSTIPATION

REACTIONS (3)
  - Menorrhagia [Recovering/Resolving]
  - Dysmenorrhoea [Recovering/Resolving]
  - Off label use [Unknown]
